FAERS Safety Report 10709434 (Version 2)
Quarter: 2017Q1

REPORT INFORMATION
  Report Type: Spontaneous
  Country: US (occurrence: US)
  Receive Date: 20150114
  Receipt Date: 20170320
  Transmission Date: 20170428
  Serious: No
  Sender: FDA-Public Use
  Company Number: US-AUROBINDO-AUR-APU-2015-00145

PATIENT
  Sex: Female
  Weight: 14.51 kg

DRUGS (2)
  1. CEFDINIR FOR ORAL SUSPENSION 250 MG/5 ML [Suspect]
     Active Substance: CEFDINIR
     Indication: EAR INFECTION
     Dosage: 3/4 TEASPOONS, DAILY
     Route: 048
     Dates: end: 20141230
  2. CEFDINIR FOR ORAL SUSPENSION 250 MG/5 ML [Suspect]
     Active Substance: CEFDINIR
     Dosage: UNK
     Route: 065
     Dates: start: 20150106

REACTIONS (2)
  - Drug ineffective [Unknown]
  - Dermatitis diaper [Not Recovered/Not Resolved]
